FAERS Safety Report 15098683 (Version 1)
Quarter: 2018Q4

REPORT INFORMATION
  Report Type: Spontaneous
  Country: US (occurrence: US)
  Receive Date: 20180702
  Receipt Date: 20180702
  Transmission Date: 20190204
  Serious: No
  Sender: FDA-Public Use
  Company Number: US-AVEDRO-AVE-2018-0104-AE

PATIENT
  Sex: Male

DRUGS (1)
  1. AVEDRO CROSS-LINKING PRODUCT(S), UNSPECIFIED (RIBOFLAVIN 5^-PHOSPHATE SODIUM) [Suspect]
     Active Substance: RIBOFLAVIN 5^-PHOSPHATE SODIUM
     Indication: KERATOCONUS
     Route: 047
     Dates: start: 2018, end: 2018

REACTIONS (1)
  - Eye pain [Recovered/Resolved]

NARRATIVE: CASE EVENT DATE: 2018
